FAERS Safety Report 21453424 (Version 2)
Quarter: 2022Q4

REPORT INFORMATION
  Report Type: Spontaneous
  Country: US (occurrence: US)
  Receive Date: 20221013
  Receipt Date: 20221031
  Transmission Date: 20230112
  Serious: Yes (Other)
  Sender: FDA-Public Use
  Company Number: US-TEVA-2022-US-2081741

PATIENT
  Age: 7 Decade
  Sex: Female

DRUGS (9)
  1. FLUOROURACIL [Suspect]
     Active Substance: FLUOROURACIL
     Indication: Anal squamous cell carcinoma
     Dosage: FOLFOX CHEMOTHERAPY
     Route: 065
  2. FLUOROURACIL [Suspect]
     Active Substance: FLUOROURACIL
     Dosage: FOLFOX CHEMOTHERAPY; REDUCED DOSE
     Route: 065
  3. LEUCOVORIN [Suspect]
     Active Substance: LEUCOVORIN
     Indication: Anal squamous cell carcinoma
     Dosage: FOLFOX CHEMOTHERAPY
     Route: 065
  4. LEUCOVORIN [Suspect]
     Active Substance: LEUCOVORIN
     Dosage: FOLFOX CHEMOTHERAPY; REDUCED DOSE
     Route: 065
  5. OXALIPLATIN [Suspect]
     Active Substance: OXALIPLATIN
     Indication: Anal squamous cell carcinoma
     Dosage: FOLFOX CHEMOTHERAPY
     Route: 065
  6. OXALIPLATIN [Suspect]
     Active Substance: OXALIPLATIN
     Dosage: FOLFOX CHEMOTHERAPY; REDUCED DOSE
     Route: 065
  7. PEMBROLIZUMAB [Suspect]
     Active Substance: PEMBROLIZUMAB
     Indication: Anal squamous cell carcinoma
     Route: 065
  8. LOCNARTECAN [Suspect]
     Active Substance: LOCNARTECAN
     Indication: Anal squamous cell carcinoma
     Route: 065
  9. PEMIGATINIB [Suspect]
     Active Substance: PEMIGATINIB
     Indication: Anal squamous cell carcinoma
     Dosage: 13.5 MILLIGRAM DAILY; ON DAYS 1-14 EVERY 21 DAY CYCLE
     Route: 048

REACTIONS (7)
  - Neuropathy peripheral [Unknown]
  - Fatigue [Unknown]
  - Nausea [Unknown]
  - Nail discolouration [Unknown]
  - Dry eye [Unknown]
  - Drug ineffective [Unknown]
  - Off label use [Unknown]
